FAERS Safety Report 18677118 (Version 1)
Quarter: 2020Q4

REPORT INFORMATION
  Report Type: Report from Study
  Country: GB (occurrence: GB)
  Receive Date: 20201229
  Receipt Date: 20201229
  Transmission Date: 20210114
  Serious: Yes (Other)
  Sender: FDA-Public Use
  Company Number: GB-SAMSUNG BIOEPIS-SB-2020-38107

PATIENT
  Sex: Female

DRUGS (1)
  1. BENEPALI [Suspect]
     Active Substance: ETANERCEPT
     Indication: OSTEOPOROSIS
     Dosage: UNKNOWN
     Route: 065

REACTIONS (4)
  - Product use in unapproved indication [Unknown]
  - Ill-defined disorder [Unknown]
  - Lower respiratory tract infection [Unknown]
  - Adverse drug reaction [Unknown]
